FAERS Safety Report 4935160-7 (Version None)
Quarter: 2006Q1

REPORT INFORMATION
  Report Type: 
  Country: None (occurrence: None)
  Receive Date: 20060302
  Receipt Date: 20060217
  Transmission Date: 20060701
  Serious: Yes (Hospitalization)
  Sender: FDA-Public Use
  Company Number: 2006024172

PATIENT
  Age: 61 Year
  Sex: Male
  Weight: 75.4 kg

DRUGS (5)
  1. SUTENT [Suspect]
     Indication: NON-SMALL CELL LUNG CANCER
     Dosage: 50 MG (50 MG, 1 IN 1 D), ORAL
     Route: 048
     Dates: start: 20051001, end: 20060205
  2. GLIPIZIDE [Concomitant]
  3. ALBUTEROL [Concomitant]
  4. OXYCONTIN [Concomitant]
  5. DEXAMETHASONE [Concomitant]

REACTIONS (2)
  - ABDOMINAL DISTENSION [None]
  - COLLAPSE OF LUNG [None]
